FAERS Safety Report 19426557 (Version 1)
Quarter: 2021Q2

REPORT INFORMATION
  Report Type: Spontaneous
  Country: US (occurrence: US)
  Receive Date: 20210617
  Receipt Date: 20210617
  Transmission Date: 20210717
  Serious: No
  Sender: FDA-Public Use
  Company Number: US-STRIDES ARCOLAB LIMITED-2021SP005490

PATIENT
  Age: 64 Year
  Sex: Male

DRUGS (7)
  1. MEMANTINE. [Suspect]
     Active Substance: MEMANTINE
     Dosage: INCREASED THE DAILY DOSE BY 5 MG EACH WEEK, TARGETING 10MG TWICE DAILY
     Route: 048
  2. NORTRIPTYLINE [Suspect]
     Active Substance: NORTRIPTYLINE
     Indication: OCCIPITAL NEURALGIA
     Dosage: 100 MILLIGRAM DAILY
     Route: 048
  3. GABAPENTIN. [Suspect]
     Active Substance: GABAPENTIN
     Indication: OCCIPITAL NEURALGIA
     Dosage: UNK
     Route: 065
  4. PREGABALIN. [Suspect]
     Active Substance: PREGABALIN
     Indication: OCCIPITAL NEURALGIA
     Dosage: UNK
     Route: 065
  5. FENTANYL. [Suspect]
     Active Substance: FENTANYL
     Indication: OCCIPITAL NEURALGIA
     Dosage: UNK
     Route: 062
  6. MEMANTINE. [Suspect]
     Active Substance: MEMANTINE
     Indication: OCCIPITAL NEURALGIA
     Dosage: 5 MILLIGRAM
     Route: 048
  7. TOPIRAMATE. [Suspect]
     Active Substance: TOPIRAMATE
     Indication: OCCIPITAL NEURALGIA
     Dosage: UNK
     Route: 065

REACTIONS (2)
  - Off label use [Unknown]
  - Drug ineffective [Unknown]
